FAERS Safety Report 24725989 (Version 1)
Quarter: 2024Q4

REPORT INFORMATION
  Report Type: Report from Study
  Country: JP (occurrence: JP)
  Receive Date: 20241212
  Receipt Date: 20241212
  Transmission Date: 20250115
  Serious: Yes (Hospitalization, Other)
  Sender: ALEXION PHARMACEUTICALS
  Company Number: JP-ASTRAZENECA-240113619_032320_P_1

PATIENT
  Age: 77 Year

DRUGS (38)
  1. ANIFROLUMAB [Suspect]
     Active Substance: ANIFROLUMAB
     Indication: Systemic lupus erythematosus
     Dosage: 300 MILLIGRAM
  2. ANIFROLUMAB [Suspect]
     Active Substance: ANIFROLUMAB
     Dosage: 300 MILLIGRAM
     Route: 042
  3. ANIFROLUMAB [Suspect]
     Active Substance: ANIFROLUMAB
     Dosage: 300 MILLIGRAM
  4. ANIFROLUMAB [Suspect]
     Active Substance: ANIFROLUMAB
     Dosage: 300 MILLIGRAM
     Route: 042
  5. PREDONINE [Suspect]
     Active Substance: PREDNISOLONE
     Indication: Systemic lupus erythematosus
     Dosage: NUMBER OF SEPARATE DOSAGES UNKNOWN
     Route: 048
  6. PREDONINE [Suspect]
     Active Substance: PREDNISOLONE
     Dosage: NUMBER OF SEPARATE DOSAGES UNKNOWN
  7. MYCOPHENOLATE MOFETIL [Concomitant]
     Active Substance: MYCOPHENOLATE MOFETIL
     Indication: Systemic lupus erythematosus
     Dosage: NUMBER OF SEPARATE DOSAGES UNKNOWN
  8. MYCOPHENOLATE MOFETIL [Concomitant]
     Active Substance: MYCOPHENOLATE MOFETIL
     Dosage: NUMBER OF SEPARATE DOSAGES UNKNOWN
     Route: 048
  9. MYCOPHENOLATE MOFETIL [Concomitant]
     Active Substance: MYCOPHENOLATE MOFETIL
     Dosage: NUMBER OF SEPARATE DOSAGES UNKNOWN
  10. MYCOPHENOLATE MOFETIL [Concomitant]
     Active Substance: MYCOPHENOLATE MOFETIL
     Dosage: NUMBER OF SEPARATE DOSAGES UNKNOWN
     Route: 048
  11. AMLODIPINE [Concomitant]
     Active Substance: AMLODIPINE BESYLATE
     Dosage: NUMBER OF SEPARATE DOSAGES UNKNOWN
  12. AMLODIPINE [Concomitant]
     Active Substance: AMLODIPINE BESYLATE
     Dosage: NUMBER OF SEPARATE DOSAGES UNKNOWN
     Route: 048
  13. AMLODIPINE [Concomitant]
     Active Substance: AMLODIPINE BESYLATE
     Dosage: NUMBER OF SEPARATE DOSAGES UNKNOWN
  14. AMLODIPINE [Concomitant]
     Active Substance: AMLODIPINE BESYLATE
     Dosage: NUMBER OF SEPARATE DOSAGES UNKNOWN
     Route: 048
  15. ALFAROL [Concomitant]
     Active Substance: ALFACALCIDOL
     Indication: Prophylaxis
     Dosage: NUMBER OF SEPARATE DOSAGES UNKNOWN
  16. ALFAROL [Concomitant]
     Active Substance: ALFACALCIDOL
     Dosage: NUMBER OF SEPARATE DOSAGES UNKNOWN
     Route: 048
  17. ALFAROL [Concomitant]
     Active Substance: ALFACALCIDOL
     Dosage: NUMBER OF SEPARATE DOSAGES UNKNOWN
  18. ALFAROL [Concomitant]
     Active Substance: ALFACALCIDOL
     Dosage: NUMBER OF SEPARATE DOSAGES UNKNOWN
     Route: 048
  19. LINAGLIPTIN [Concomitant]
     Active Substance: LINAGLIPTIN
     Dosage: NUMBER OF SEPARATE DOSAGES UNKNOWN
     Route: 048
  20. LINAGLIPTIN [Concomitant]
     Active Substance: LINAGLIPTIN
     Dosage: NUMBER OF SEPARATE DOSAGES UNKNOWN
  21. VOGLIBOSE [Concomitant]
     Active Substance: VOGLIBOSE
     Dosage: NUMBER OF SEPARATE DOSAGES UNKNOWN
  22. VOGLIBOSE [Concomitant]
     Active Substance: VOGLIBOSE
     Dosage: NUMBER OF SEPARATE DOSAGES UNKNOWN
     Route: 048
  23. VOGLIBOSE [Concomitant]
     Active Substance: VOGLIBOSE
     Dosage: NUMBER OF SEPARATE DOSAGES UNKNOWN
  24. VOGLIBOSE [Concomitant]
     Active Substance: VOGLIBOSE
     Dosage: NUMBER OF SEPARATE DOSAGES UNKNOWN
     Route: 048
  25. REFLEX [Concomitant]
     Active Substance: MIRTAZAPINE
     Dosage: NUMBER OF SEPARATE DOSAGES UNKNOWN
     Route: 048
  26. REFLEX [Concomitant]
     Active Substance: MIRTAZAPINE
     Dosage: NUMBER OF SEPARATE DOSAGES UNKNOWN
  27. ETHYL LOFLAZEPATE [Concomitant]
     Active Substance: ETHYL LOFLAZEPATE
     Dosage: NUMBER OF SEPARATE DOSAGES UNKNOWN
     Route: 048
  28. ETHYL LOFLAZEPATE [Concomitant]
     Active Substance: ETHYL LOFLAZEPATE
     Dosage: NUMBER OF SEPARATE DOSAGES UNKNOWN
  29. QUETIAPINE [Concomitant]
     Active Substance: QUETIAPINE
     Dosage: NUMBER OF SEPARATE DOSAGES UNKNOWN
     Route: 048
  30. QUETIAPINE [Concomitant]
     Active Substance: QUETIAPINE
     Dosage: NUMBER OF SEPARATE DOSAGES UNKNOWN
  31. URSODIOL [Concomitant]
     Active Substance: URSODIOL
     Dosage: NUMBER OF SEPARATE DOSAGES UNKNOWN
     Route: 048
  32. URSODIOL [Concomitant]
     Active Substance: URSODIOL
     Dosage: NUMBER OF SEPARATE DOSAGES UNKNOWN
  33. LANSOPRAZOLE [Concomitant]
     Active Substance: LANSOPRAZOLE
     Dosage: NUMBER OF SEPARATE DOSAGES UNKNOWN
     Route: 048
  34. LANSOPRAZOLE [Concomitant]
     Active Substance: LANSOPRAZOLE
     Dosage: NUMBER OF SEPARATE DOSAGES UNKNOWN
  35. FEBUXOSTAT [Concomitant]
     Active Substance: FEBUXOSTAT
     Dosage: NUMBER OF SEPARATE DOSAGES UNKNOWN
     Route: 048
  36. FEBUXOSTAT [Concomitant]
     Active Substance: FEBUXOSTAT
     Dosage: NUMBER OF SEPARATE DOSAGES UNKNOWN
  37. AZILSARTAN KAMEDOXOMIL [Concomitant]
     Active Substance: AZILSARTAN KAMEDOXOMIL
     Dosage: NUMBER OF SEPARATE DOSAGES UNKNOWN
     Route: 048
  38. AZILSARTAN KAMEDOXOMIL [Concomitant]
     Active Substance: AZILSARTAN KAMEDOXOMIL
     Dosage: NUMBER OF SEPARATE DOSAGES UNKNOWN

REACTIONS (2)
  - Pneumonia bacterial [Recovered/Resolved]
  - Cytomegalovirus infection [Recovered/Resolved]
